FAERS Safety Report 5237814-4 (Version None)
Quarter: 2007Q1

REPORT INFORMATION
  Report Type: 
  Country: None (occurrence: None)
  Receive Date: 20070214
  Receipt Date: 20070202
  Transmission Date: 20070707
  Serious: Yes (Hospitalization)
  Sender: FDA-Public Use
  Company Number: GB-MERCK-0702GBR00021

PATIENT
  Age: 38 Year
  Sex: Male

DRUGS (11)
  1. ZOCOR [Suspect]
     Indication: BLOOD CHOLESTEROL INCREASED
     Route: 048
     Dates: end: 20070107
  2. AMISULPRIDE [Concomitant]
     Route: 048
     Dates: end: 20070107
  3. BECLOMETHASONE DIPROPIONATE [Concomitant]
  4. DIHYDROCODEINE [Concomitant]
     Route: 065
  5. GABAPENTIN [Concomitant]
     Route: 048
     Dates: end: 20070107
  6. LISINOPRIL [Concomitant]
     Route: 048
     Dates: end: 20070107
  7. METFORMIN [Concomitant]
     Route: 048
     Dates: end: 20070107
  8. PROCYCLIDINE HYDROCHLORIDE [Concomitant]
     Route: 065
  9. ALBUTEROL [Concomitant]
  10. SERTRALINE HYDROCHLORIDE [Concomitant]
     Route: 065
  11. TRAMADOL HYDROCHLORIDE [Concomitant]
     Route: 065

REACTIONS (3)
  - BLOOD CREATINE PHOSPHOKINASE INCREASED [None]
  - BLOOD CREATININE INCREASED [None]
  - RHABDOMYOLYSIS [None]
